FAERS Safety Report 5024903-2 (Version None)
Quarter: 2006Q2

REPORT INFORMATION
  Report Type: 
  Country: None (occurrence: None)
  Receive Date: 20060607
  Receipt Date: 20060522
  Transmission Date: 20061013
  Serious: Yes (Other)
  Sender: FDA-Public Use
  Company Number: KR200605004675

PATIENT
  Age: 49 Year
  Sex: Male

DRUGS (2)
  1. CIALIS [Suspect]
     Indication: ERECTILE DYSFUNCTION
     Dosage: 10 MG, AS NEEDED, ORAL
     Route: 048
     Dates: start: 20060507, end: 20060517
  2. ANTIPHLOGISTINE (IODINE, KAOLIN, SALICYLIC ACID) [Concomitant]

REACTIONS (1)
  - VISUAL FIELD DEFECT [None]
